FAERS Safety Report 4618344-7 (Version None)
Quarter: 2005Q1

REPORT INFORMATION
  Report Type: 
  Country: None (occurrence: None)
  Receive Date: 20050323
  Receipt Date: 20050311
  Transmission Date: 20050727
  Serious: Yes (Hospitalization)
  Sender: FDA-Public Use
  Company Number: MK200503-0159-1

PATIENT
  Age: 32 Year
  Sex: Female

DRUGS (2)
  1. ANAFRANIL CAP [Suspect]
     Indication: DEPRESSION
     Dosage: 750 MG, ONE TIME, PO
     Route: 048
     Dates: start: 20050125
  2. NORSET 300MG, LARGACTIL 1250 MG, SERESTA AND ALCOHOL ARE TAKEN ON [Suspect]
     Dates: start: 20050125

REACTIONS (13)
  - BLOOD ALCOHOL INCREASED [None]
  - BLOOD LACTIC ACID INCREASED [None]
  - COMA [None]
  - DRUG EXPOSURE DURING PREGNANCY [None]
  - DRUG SCREEN POSITIVE [None]
  - ELECTROCARDIOGRAM QRS COMPLEX SHORTENED [None]
  - HYPOTENSION [None]
  - MIOSIS [None]
  - OCULOCEPHALOGYRIC REFLEX ABSENT [None]
  - PREGNANCY [None]
  - PUPILLARY REFLEX IMPAIRED [None]
  - SINUS TACHYCARDIA [None]
  - SUICIDE ATTEMPT [None]
